FAERS Safety Report 7468345-9 (Version None)
Quarter: 2011Q2

REPORT INFORMATION
  Report Type: 
  Country: None (occurrence: None)
  Receive Date: 20110509
  Receipt Date: 20110504
  Transmission Date: 20111010
  Serious: Yes (Hospitalization, Other)
  Sender: FDA-Public Use
  Company Number: CHPA2011US06337

PATIENT
  Age: 21 Year
  Sex: Male
  Weight: 75.737 kg

DRUGS (9)
  1. MARIJUANA [Suspect]
     Route: 065
  2. NICOTINE [Suspect]
     Indication: SMOKING CESSATION THERAPY
     Dosage: 7 MG, QD
     Route: 062
     Dates: end: 20110401
  3. CLONAZEPAM [Concomitant]
     Dosage: 1 MG, QHS
     Route: 048
  4. LEXAPRO [Concomitant]
     Indication: DEPRESSION
     Dosage: ONCE AT NIGHT
     Route: 048
  5. RISPERIDONE [Concomitant]
     Indication: ANXIETY
     Dosage: ONCE AT NIGHT
     Route: 048
  6. CLONAZEPAM [Concomitant]
     Indication: ANXIETY
     Dosage: .75 MG, QD
     Route: 048
  7. NICOTINE [Suspect]
     Dosage: 21 MG, QD
     Route: 062
  8. ALCOHOL [Suspect]
     Dosage: UNK, UNK
     Route: 048
  9. NICOTINE [Suspect]
     Dosage: 14 MG, QD
     Route: 062

REACTIONS (8)
  - ELECTROCARDIOGRAM ABNORMAL [None]
  - CONFUSIONAL STATE [None]
  - NIGHTMARE [None]
  - HEART RATE INCREASED [None]
  - HEART RATE IRREGULAR [None]
  - HEADACHE [None]
  - NAUSEA [None]
  - IRRITABILITY [None]
